FAERS Safety Report 18779401 (Version 6)
Quarter: 2021Q3

REPORT INFORMATION
  Report Type: Spontaneous
  Country: US (occurrence: US)
  Receive Date: 20210125
  Receipt Date: 20210702
  Transmission Date: 20211014
  Serious: No
  Sender: FDA-Public Use
  Company Number: US-BLUEPRINT MEDICINES CORPORATION-SP-US-2021-000054

PATIENT
  Age: 66 Year
  Sex: Male

DRUGS (2)
  1. AYVAKIT [Suspect]
     Active Substance: AVAPRITINIB
     Route: 048
     Dates: start: 20201230
  2. AYVAKIT [Suspect]
     Active Substance: AVAPRITINIB
     Indication: GASTROINTESTINAL STROMAL TUMOUR
     Route: 048
     Dates: start: 20201230

REACTIONS (9)
  - Paranasal sinus discomfort [Unknown]
  - Nasopharyngitis [Unknown]
  - Sinusitis [Unknown]
  - Lacrimation increased [Unknown]
  - Periorbital oedema [Unknown]
  - Sinus headache [Unknown]
  - Pharyngeal swelling [Recovered/Resolved]
  - Asthenia [Not Recovered/Not Resolved]
  - Dizziness [Unknown]

NARRATIVE: CASE EVENT DATE: 20210223
